FAERS Safety Report 24971098 (Version 5)
Quarter: 2025Q3

REPORT INFORMATION
  Report Type: Spontaneous
  Country: JP (occurrence: JP)
  Receive Date: 20250214
  Receipt Date: 20250802
  Transmission Date: 20251021
  Serious: Yes (Hospitalization, Other)
  Sender: ALEXION PHARMACEUTICALS
  Company Number: JP-ASTRAZENECA-250014032_063010_P_1

PATIENT
  Age: 70 Year
  Sex: Male

DRUGS (14)
  1. DAPAGLIFLOZIN [Suspect]
     Active Substance: DAPAGLIFLOZIN
     Indication: Chronic kidney disease
     Dosage: 10 MILLIGRAM, QD
     Dates: start: 202406
  2. DAPAGLIFLOZIN [Suspect]
     Active Substance: DAPAGLIFLOZIN
     Indication: Type 2 diabetes mellitus
     Dosage: 10 MILLIGRAM, QD
     Dates: start: 20240603
  3. AMLODIPINE [Concomitant]
     Active Substance: AMLODIPINE BESYLATE
  4. AMLODIPINE [Concomitant]
     Active Substance: AMLODIPINE BESYLATE
  5. AMLODIPINE [Concomitant]
     Active Substance: AMLODIPINE BESYLATE
     Dosage: 10 MILLIGRAM, QD
     Dates: start: 20230501
  6. AZILSARTAN KAMEDOXOMIL [Concomitant]
     Active Substance: AZILSARTAN KAMEDOXOMIL
  7. AZILSARTAN KAMEDOXOMIL [Concomitant]
     Active Substance: AZILSARTAN KAMEDOXOMIL
     Dosage: DOSE UNKNOWN
     Dates: start: 20230605
  8. LINAGLIPTIN [Concomitant]
     Active Substance: LINAGLIPTIN
  9. LINAGLIPTIN [Concomitant]
     Active Substance: LINAGLIPTIN
     Indication: Chronic kidney disease
     Dosage: DOSE UNKNOWN
     Dates: start: 20241213
  10. ROSUVASTATIN [Concomitant]
     Active Substance: ROSUVASTATIN
  11. ROSUVASTATIN [Concomitant]
     Active Substance: ROSUVASTATIN
     Dosage: DOSE UNKNOWN
     Dates: start: 20240401
  12. ESAXERENONE [Concomitant]
     Active Substance: ESAXERENONE
     Indication: Hypertension
  13. ESAXERENONE [Concomitant]
     Active Substance: ESAXERENONE
  14. ESAXERENONE [Concomitant]
     Active Substance: ESAXERENONE
     Dosage: 1.25 MILLIGRAM, QD
     Dates: start: 20230807

REACTIONS (2)
  - Cerebellar infarction [Unknown]
  - Glycosylated haemoglobin increased [Unknown]

NARRATIVE: CASE EVENT DATE: 20241213
